FAERS Safety Report 7122140-9 (Version None)
Quarter: 2010Q4

REPORT INFORMATION
  Report Type: 
  Country: None (occurrence: None)
  Receive Date: 20101122
  Receipt Date: 20101122
  Transmission Date: 20110411
  Serious: No
  Sender: FDA-Public Use
  Company Number: None

PATIENT
  Sex: Male
  Weight: 87 kg

DRUGS (3)
  1. BEVACIZUMAB (RHUMAB VEGF) [Suspect]
     Dosage: 1300 MG
  2. CARBOPLATIN [Suspect]
     Dosage: 770 MG
  3. TAXOL [Suspect]
     Dosage: 414 MG

REACTIONS (3)
  - CARDIAC ARREST [None]
  - FALL [None]
  - LOSS OF CONSCIOUSNESS [None]
